FAERS Safety Report 4358045-6 (Version None)
Quarter: 2004Q2

REPORT INFORMATION
  Report Type: 
  Country: None (occurrence: None)
  Receive Date: 20040514
  Receipt Date: 20040507
  Transmission Date: 20050107
  Serious: Yes (Other)
  Sender: FDA-Public Use
  Company Number: 200411462EU

PATIENT
  Sex: Male

DRUGS (4)
  1. SPIRONOLACTONE [Suspect]
     Indication: FALLOT'S TETRALOGY
  2. ASPIRIN [Suspect]
     Indication: FALLOT'S TETRALOGY
  3. FUROSEMIDE [Suspect]
     Indication: FALLOT'S TETRALOGY
  4. DIAZOXIDE [Suspect]
     Indication: HYPERINSULINISM

REACTIONS (4)
  - HYPERGLYCAEMIA [None]
  - HYPOGLYCAEMIA [None]
  - MEDICATION ERROR [None]
  - NEONATAL DISORDER [None]
